FAERS Safety Report 10074675 (Version 2)
Quarter: 2014Q2

REPORT INFORMATION
  Report Type: Spontaneous
  Country: US (occurrence: US)
  Receive Date: 20140414
  Receipt Date: 20140414
  Transmission Date: 20141212
  Serious: Yes (Hospitalization)
  Sender: FDA-Public Use
  Company Number: US-009507513-1311USA008192

PATIENT
  Sex: Female

DRUGS (3)
  1. SINGULAIR [Suspect]
     Indication: PRODUCT USED FOR UNKNOWN INDICATION
     Route: 048
  2. SYMBICORT [Suspect]
     Indication: PRODUCT USED FOR UNKNOWN INDICATION
     Dosage: UNK
     Route: 055
  3. ADVAIR [Suspect]
     Indication: ASTHMA
     Dosage: 100/50 MCG AT 1 PUFF, BID
     Route: 065
     Dates: start: 20130110

REACTIONS (3)
  - Asthma [Unknown]
  - Cyanosis [Unknown]
  - Pneumonia [Unknown]
